FAERS Safety Report 9000342 (Version 1)
Quarter: 2013Q1

REPORT INFORMATION
  Report Type: Spontaneous
  Country: US (occurrence: None)
  Receive Date: 20130102
  Receipt Date: 20130102
  Transmission Date: 20140127
  Serious: Yes (Other)
  Sender: FDA-Public Use
  Company Number: None

PATIENT
  Sex: Female
  Weight: 82 kg

DRUGS (2)
  1. UNSPECIFIED INGREDIENT [Suspect]
     Dosage: A FEW DROPS
     Route: 061
     Dates: start: 20121217, end: 20121217
  2. UNSPECIFIED INGREDIENT [Suspect]
     Dosage: A FEW DROPS
     Route: 061
     Dates: start: 20121217, end: 20121217

REACTIONS (2)
  - Lip swelling [None]
  - Swelling face [None]
